FAERS Safety Report 12999415 (Version 1)
Quarter: 2016Q4

REPORT INFORMATION
  Report Type: Other
  Country: GB (occurrence: GB)
  Receive Date: 20161205
  Receipt Date: 20161205
  Transmission Date: 20170207
  Serious: Yes (Other)
  Sender: FDA-Public Use
  Company Number: GB-PERRIGO-16GB022385

PATIENT

DRUGS (2)
  1. CALPOL [Concomitant]
     Active Substance: ACETAMINOPHEN
  2. IBUPROFEN. [Suspect]
     Active Substance: IBUPROFEN
     Indication: TEETHING
     Dosage: 2.5 ML, UNK
     Route: 048
     Dates: start: 20160920, end: 20160922

REACTIONS (3)
  - Oral mucosal eruption [Recovered/Resolved]
  - Tongue blistering [Recovered/Resolved]
  - Pain [Recovered/Resolved]

NARRATIVE: CASE EVENT DATE: 20160920
